FAERS Safety Report 4618916-X (Version None)
Quarter: 2005Q1

REPORT INFORMATION
  Report Type: 
  Country: None (occurrence: None)
  Receive Date: 20050323
  Receipt Date: 20050311
  Transmission Date: 20050727
  Serious: Yes (Other)
  Sender: FDA-Public Use
  Company Number: 200511033BCC

PATIENT
  Age: 54 Year
  Sex: Male
  Weight: 93.8946 kg

DRUGS (2)
  1. MILK OF MAGNESIA TAB [Suspect]
     Indication: ANAL FISSURE
     Dosage: 30 ML, QD, ORAL
     Route: 048
     Dates: start: 20041101
  2. DIOVAN [Concomitant]

REACTIONS (2)
  - ABDOMINAL PAIN [None]
  - NEPHROLITHIASIS [None]
